FAERS Safety Report 14298218 (Version 1)
Quarter: 2017Q4

REPORT INFORMATION
  Report Type: Spontaneous
  Country: US (occurrence: US)
  Receive Date: 20171218
  Receipt Date: 20171218
  Transmission Date: 20180321
  Serious: No
  Sender: FDA-Public Use
  Company Number: US-BIOCOMPATIBLES UK LTD-2017BTG01404

PATIENT

DRUGS (4)
  1. VARITHENA [Suspect]
     Active Substance: POLIDOCANOL
     Indication: PRODUCT USED FOR UNKNOWN INDICATION
     Dosage: UNK
     Route: 065
  2. VARITHENA [Suspect]
     Active Substance: POLIDOCANOL
     Dosage: UNK
     Route: 065
  3. VARITHENA [Suspect]
     Active Substance: POLIDOCANOL
     Dosage: UNK
     Route: 065
  4. VARITHENA [Suspect]
     Active Substance: POLIDOCANOL
     Dosage: UNK
     Route: 065
     Dates: start: 20171026

REACTIONS (7)
  - Varicose vein [Unknown]
  - Feeling hot [Unknown]
  - Phlebitis [Unknown]
  - Contusion [Unknown]
  - Swelling [Unknown]
  - Pain in extremity [Unknown]
  - Erythema [Unknown]

NARRATIVE: CASE EVENT DATE: 2017
